FAERS Safety Report 4801846-8 (Version None)
Quarter: 2005Q4

REPORT INFORMATION
  Report Type: 
  Country: None (occurrence: None)
  Receive Date: 20051011
  Receipt Date: 20050926
  Transmission Date: 20060501
  Serious: Yes (Hospitalization)
  Sender: FDA-Public Use
  Company Number: 234536K05USA

PATIENT
  Age: 45 Year
  Sex: Female

DRUGS (1)
  1. REBIF [Suspect]
     Indication: MULTIPLE SCLEROSIS
     Dosage: 44 MCG, 3 IN 1 WEEKS, SUBCUTANEOUS
     Route: 058
     Dates: start: 20041130

REACTIONS (10)
  - ASTHENIA [None]
  - BILIARY TRACT DISORDER [None]
  - CHOLECYSTITIS INFECTIVE [None]
  - DIARRHOEA [None]
  - INCONTINENCE [None]
  - MOVEMENT DISORDER [None]
  - MUSCULOSKELETAL STIFFNESS [None]
  - PAIN [None]
  - RESPIRATORY ARREST [None]
  - URINARY TRACT INFECTION [None]
